FAERS Safety Report 5223804-4 (Version None)
Quarter: 2007Q1

REPORT INFORMATION
  Report Type: 
  Country: None (occurrence: None)
  Receive Date: 20070130
  Receipt Date: 20070118
  Transmission Date: 20070707
  Serious: Yes (Other)
  Sender: FDA-Public Use
  Company Number: PHBS2007BE01145

PATIENT
  Age: 56 Year
  Sex: Female
  Weight: 85 kg

DRUGS (5)
  1. ZOMETA [Suspect]
     Indication: METASTASES TO BONE
     Dosage: 4 MG, MONTHLY
     Route: 042
     Dates: start: 20040927, end: 20061028
  2. OMEPRAZOLE [Concomitant]
     Dosage: 20 MG/D
     Route: 065
  3. FEMARA [Concomitant]
     Dosage: 2.5 MG/D
     Route: 065
  4. STEOVIT D3 [Concomitant]
     Dosage: 400 MG/D
     Route: 065
  5. BIOMAGNESIN [Concomitant]
     Dosage: 1 DF/D
     Route: 065

REACTIONS (3)
  - IMPAIRED HEALING [None]
  - OSTEONECROSIS [None]
  - TOOTH EXTRACTION [None]
